FAERS Safety Report 12737759 (Version 1)
Quarter: 2016Q3

REPORT INFORMATION
  Report Type: Spontaneous
  Country: US (occurrence: US)
  Receive Date: 20160912
  Receipt Date: 20160912
  Transmission Date: 20161109
  Serious: No
  Sender: FDA-Public Use
  Company Number: US-SA-2016SA119294

PATIENT
  Sex: Female

DRUGS (2)
  1. TOUJEO [Suspect]
     Active Substance: INSULIN GLARGINE
     Route: 065
     Dates: start: 20160420, end: 20160512
  2. SOLOSTAR [Concomitant]
     Active Substance: DEVICE
     Dates: start: 20160420, end: 20160512

REACTIONS (1)
  - Drug ineffective [Unknown]
